FAERS Safety Report 7698903-8 (Version None)
Quarter: 2011Q3

REPORT INFORMATION
  Report Type: 
  Country: None (occurrence: None)
  Receive Date: 20110819
  Receipt Date: 20110817
  Transmission Date: 20111222
  Serious: Yes (Other)
  Sender: FDA-Public Use
  Company Number: US-BAYER-2011-074383

PATIENT
  Sex: Female

DRUGS (1)
  1. AVELOX [Suspect]
     Dosage: UNK

REACTIONS (5)
  - AGEUSIA [None]
  - RASH [None]
  - PAIN [None]
  - DERMATITIS ACNEIFORM [None]
  - RASH MACULAR [None]
